FAERS Safety Report 7001244-5 (Version None)
Quarter: 2010Q3

REPORT INFORMATION
  Report Type: 
  Country: None (occurrence: None)
  Receive Date: 20100920
  Receipt Date: 20100217
  Transmission Date: 20110219
  Serious: Yes (Other)
  Sender: FDA-Public Use
  Company Number: US-ASTRAZENECA-2009SE30904

PATIENT
  Sex: Male

DRUGS (3)
  1. SEROQUEL XR [Suspect]
     Indication: PSYCHOTIC DISORDER
     Route: 048
  2. SEROQUEL XR [Suspect]
     Dosage: 200-600 MG
     Route: 048
     Dates: end: 20090601
  3. TNTL -MULTIPLE [Concomitant]

REACTIONS (4)
  - DYSTONIA [None]
  - EXTRAPYRAMIDAL DISORDER [None]
  - STEREOTYPY [None]
  - TARDIVE DYSKINESIA [None]
